FAERS Safety Report 9282385 (Version 1)
Quarter: 2013Q2

REPORT INFORMATION
  Report Type: Spontaneous
  Country: US (occurrence: None)
  Receive Date: 20130506
  Receipt Date: 20130506
  Transmission Date: 20140414
  Serious: Yes (Other)
  Sender: FDA-Public Use
  Company Number: 2013EXPUS00100

PATIENT
  Sex: Male

DRUGS (1)
  1. EXPAREL (BUPIVACAINE) LIPOSOME INJECTABLE SUSPENSION, MG/ML [Suspect]
     Indication: POSTOPERATIVE CARE

REACTIONS (3)
  - Hyperkalaemia [None]
  - Incorrect drug dosage form administered [None]
  - Drug administration error [None]
